FAERS Safety Report 8605559-6 (Version None)
Quarter: 2012Q3

REPORT INFORMATION
  Report Type: 
  Country: None (occurrence: None)
  Receive Date: 20120820
  Receipt Date: 20120809
  Transmission Date: 20120928
  Serious: Yes (Hospitalization, Other)
  Sender: FDA-Public Use
  Company Number: US-ASTRAZENECA-2010SE60787

PATIENT
  Age: 66 Year
  Sex: Female
  Weight: 76.7 kg

DRUGS (16)
  1. SEROQUEL [Suspect]
     Indication: DEPRESSION
     Route: 048
  2. LEXAPRO [Concomitant]
     Route: 048
  3. VITAMIN D [Concomitant]
     Route: 048
  4. NEXIUM [Suspect]
     Indication: GASTROOESOPHAGEAL REFLUX DISEASE
     Route: 048
     Dates: start: 20060101
  5. SYNTHROID [Concomitant]
     Route: 048
  6. WELLBUTRIN [Concomitant]
     Route: 048
  7. NOVOLIN 70/30 [Concomitant]
     Route: 058
  8. FLUTICASONE PROPIONATE [Concomitant]
     Route: 055
  9. BENADRYL [Concomitant]
     Route: 048
  10. HYDROMORPHONE HYDROCHLORIDE [Concomitant]
     Route: 048
  11. SEROQUEL [Suspect]
     Route: 048
  12. SEROQUEL [Suspect]
     Route: 048
     Dates: start: 20070101
  13. VALTREX [Concomitant]
     Route: 048
  14. ATACAND [Suspect]
     Indication: CARDIAC DISORDER
     Route: 048
     Dates: start: 20070101
  15. LIPITOR [Concomitant]
     Route: 048
  16. FERROUS SULFATE TAB [Concomitant]
     Route: 048

REACTIONS (4)
  - FALL [None]
  - FEMUR FRACTURE [None]
  - LOWER LIMB FRACTURE [None]
  - INTENTIONAL DRUG MISUSE [None]
